FAERS Safety Report 7294649-9 (Version None)
Quarter: 2011Q1

REPORT INFORMATION
  Report Type: 
  Country: None (occurrence: None)
  Receive Date: 20110204
  Receipt Date: 20110129
  Transmission Date: 20110831
  Serious: Yes (Death)
  Sender: FDA-Public Use
  Company Number: 2010US003582

PATIENT
  Age: 65 Year
  Sex: Male

DRUGS (1)
  1. PROGRAF [Suspect]
     Indication: LIVER TRANSPLANT
     Dates: start: 20061106, end: 20091101

REACTIONS (6)
  - METASTASES TO LUNG [None]
  - LOCAL SWELLING [None]
  - HYPOPHARYNGEAL CANCER STAGE IV [None]
  - LUNG NEOPLASM [None]
  - BONE LESION [None]
  - PROSTATOMEGALY [None]
